FAERS Safety Report 8771436 (Version 4)
Quarter: 2013Q1

REPORT INFORMATION
  Report Type: Spontaneous
  Country: US (occurrence: US)
  Receive Date: 20120905
  Receipt Date: 20130313
  Transmission Date: 20140127
  Serious: Yes (Hospitalization, Disabling, Other)
  Sender: FDA-Public Use
  Company Number: US-009507513-1208USA012635

PATIENT
  Sex: Female
  Weight: 61.22 kg

DRUGS (1)
  1. NUVARING [Suspect]
     Indication: MENSTRUATION IRREGULAR
     Dosage: UNK
     Route: 067
     Dates: start: 200810, end: 20090911

REACTIONS (12)
  - Thrombectomy [Recovered/Resolved]
  - Deep vein thrombosis [Recovered/Resolved]
  - Hypercoagulation [Unknown]
  - Angioplasty [Recovering/Resolving]
  - Urinary tract infection [Recovered/Resolved]
  - Chest pain [Unknown]
  - Thymus enlargement [Unknown]
  - Thymoma [Unknown]
  - Angiopathy [Unknown]
  - Vascular stenosis [Recovering/Resolving]
  - Pulmonary embolism [Unknown]
  - Drug hypersensitivity [Unknown]
